FAERS Safety Report 8461688-1 (Version None)
Quarter: 2012Q2

REPORT INFORMATION
  Report Type: 
  Country: None (occurrence: None)
  Receive Date: 20120625
  Receipt Date: 20120612
  Transmission Date: 20120825
  Serious: Yes (Other)
  Sender: FDA-Public Use
  Company Number: US-JNJFOC-20120605095

PATIENT
  Age: 53 Year
  Sex: Female

DRUGS (1)
  1. BENGAY ULTRA STRENGTH PATCH [Suspect]
     Indication: MYALGIA
     Route: 061

REACTIONS (4)
  - HYPERAESTHESIA [None]
  - SCAR [None]
  - BURN INFECTION [None]
  - ABDOMINAL PAIN [None]
